FAERS Safety Report 4282696-0 (Version None)
Quarter: 2004Q1

REPORT INFORMATION
  Report Type: 
  Country: None (occurrence: None)
  Receive Date: 20040130
  Receipt Date: 20030303
  Transmission Date: 20041129
  Serious: No
  Sender: FDA-Public Use
  Company Number: US-BRISTOL-MYERS SQUIBB COMPANY-12201919

PATIENT
  Age: 51 Year
  Sex: Female

DRUGS (1)
  1. SERZONE [Suspect]
     Dosage: AT BEDTIME
     Route: 048
     Dates: start: 20020301, end: 20020603

REACTIONS (1)
  - MEDICATION ERROR [None]
